FAERS Safety Report 8902109 (Version 1)
Quarter: 2012Q4

REPORT INFORMATION
  Report Type: 
  Country: US (occurrence: US)
  Receive Date: 20121112
  Receipt Date: 20121112
  Transmission Date: 20130627
  Serious: Yes (Other)
  Sender: FDA-Public Use
  Company Number: US-GENZYME-RENA-1001673

PATIENT
  Sex: Female

DRUGS (1)
  1. RENVELA [Suspect]
     Indication: BLOOD PHOSPHORUS INCREASED
     Dosage: 800 mg, UNK
     Route: 065

REACTIONS (1)
  - Neoplasm malignant [Not Recovered/Not Resolved]
